FAERS Safety Report 9348503 (Version 1)
Quarter: 2013Q2

REPORT INFORMATION
  Report Type: Spontaneous
  Country: US (occurrence: US)
  Receive Date: 20130614
  Receipt Date: 20130614
  Transmission Date: 20140414
  Serious: Yes (Death, Other)
  Sender: FDA-Public Use
  Company Number: US-ABBOTT-13P-163-1102888-00

PATIENT
  Age: 71 Year
  Sex: Male

DRUGS (5)
  1. CLARITHROMYCIN [Suspect]
     Indication: MYCOBACTERIUM ABSCESSUS INFECTION
  2. IMIPENEM [Suspect]
     Indication: MYCOBACTERIUM ABSCESSUS INFECTION
  3. AMIKACIN [Suspect]
     Indication: MYCOBACTERIUM ABSCESSUS INFECTION
  4. VORICONAZOLE [Suspect]
     Indication: ASPERGILLUS INFECTION
  5. ANTIBACTERIALS FOR SYSTEMIC USE [Concomitant]
     Indication: PRODUCT USED FOR UNKNOWN INDICATION

REACTIONS (2)
  - Infection [Fatal]
  - Drug ineffective [Unknown]
